FAERS Safety Report 4655599-7 (Version None)
Quarter: 2005Q2

REPORT INFORMATION
  Report Type: 
  Country: None (occurrence: None)
  Receive Date: 20050505
  Receipt Date: 20050427
  Transmission Date: 20051028
  Serious: Yes (Other)
  Sender: FDA-Public Use
  Company Number: US_010463402

PATIENT
  Age: 35 Year
  Sex: Female
  Weight: 68 kg

DRUGS (12)
  1. HUMULIN N [Suspect]
     Indication: DIABETES MELLITUS
     Dosage: 10 U AT BEDTIME
     Dates: start: 19820101
  2. NPH ILETIN I (BEEF-PORK) [Suspect]
     Indication: DIABETES MELLITUS INSULIN-DEPENDENT
     Dates: start: 19610101
  3. REGULAR ILETIN II [Suspect]
     Indication: DIABETES MELLITUS INSULIN-DEPENDENT
     Dates: start: 19610101
  4. HUMALOG [Suspect]
     Indication: DIABETES MELLITUS
     Dosage: 10 U/3 DAY
     Dates: start: 19960101
  5. LANTUS [Concomitant]
  6. ZOCOR [Concomitant]
  7. PRINIVIL [Concomitant]
  8. SYNTHROID [Concomitant]
  9. ZOLOFT [Concomitant]
  10. LIPITOR [Concomitant]
  11. AMBIEN [Concomitant]
  12. MULTI-VITAMINS [Concomitant]

REACTIONS (11)
  - BLOOD CHOLESTEROL INCREASED [None]
  - BLOOD GLUCOSE DECREASED [None]
  - BLOOD GLUCOSE INCREASED [None]
  - CAESAREAN SECTION [None]
  - CORONARY ARTERY DISEASE [None]
  - DEPRESSION [None]
  - DRUG EXPOSURE DURING PREGNANCY [None]
  - GALLBLADDER DISORDER [None]
  - HYPERTENSION [None]
  - HYPOTHYROIDISM [None]
  - PREGNANCY [None]
